FAERS Safety Report 5931498-5 (Version None)
Quarter: 2008Q4

REPORT INFORMATION
  Report Type: 
  Country: None (occurrence: None)
  Receive Date: 20081027
  Receipt Date: 20081020
  Transmission Date: 20090506
  Serious: Yes (Other)
  Sender: FDA-Public Use
  Company Number: A0724630A

PATIENT
  Sex: Male

DRUGS (1)
  1. AVANDIA [Suspect]

REACTIONS (1)
  - MYOCARDIAL INFARCTION [None]
